FAERS Safety Report 7095454-9 (Version None)
Quarter: 2010Q4

REPORT INFORMATION
  Report Type: 
  Country: None (occurrence: None)
  Receive Date: 20101111
  Receipt Date: 20101104
  Transmission Date: 20110411
  Serious: Yes (Other)
  Sender: FDA-Public Use
  Company Number: US-BRISTOL-MYERS SQUIBB COMPANY-15250145

PATIENT
  Age: 51 Year
  Sex: Male
  Weight: 81 kg

DRUGS (6)
  1. COUMADIN [Suspect]
     Dosage: ALWAYS USED 5MG/D; INCREASED TO 15 MG IN PRISON, 12MG DAILY SINCE 2005
     Dates: start: 19960101
  2. METOPROLOL [Concomitant]
  3. ENALAPRIL MALEATE [Concomitant]
  4. ALLOPURINOL [Concomitant]
  5. PREDNISONE [Concomitant]
  6. NORTRIPTYLINE [Concomitant]

REACTIONS (5)
  - EPISTAXIS [None]
  - GRAND MAL CONVULSION [None]
  - HEADACHE [None]
  - MOUTH HAEMORRHAGE [None]
  - SUBARACHNOID HAEMORRHAGE [None]
